FAERS Safety Report 6965005-5 (Version None)
Quarter: 2010Q3

REPORT INFORMATION
  Report Type: 
  Country: None (occurrence: None)
  Receive Date: 20100901
  Receipt Date: 20100823
  Transmission Date: 20110219
  Serious: Yes (Hospitalization)
  Sender: FDA-Public Use
  Company Number: 2010PL000138

PATIENT
  Age: 27 Year
  Sex: Male

DRUGS (2)
  1. IMURAN [Suspect]
     Indication: PRODUCT USED FOR UNKNOWN INDICATION
  2. CIMZIA [Suspect]
     Indication: CROHN'S DISEASE
     Dosage: 400 MG; 1X MONTH; SC
     Route: 058
     Dates: start: 20081215

REACTIONS (4)
  - ABDOMINAL PAIN [None]
  - ANAEMIA [None]
  - COLITIS ULCERATIVE [None]
  - DIARRHOEA [None]
